FAERS Safety Report 5655833-0 (Version None)
Quarter: 2008Q1

REPORT INFORMATION
  Report Type: 
  Country: None (occurrence: None)
  Receive Date: 20080307
  Receipt Date: 20080228
  Transmission Date: 20080703
  Serious: Yes (Other)
  Sender: FDA-Public Use
  Company Number: JP-ABBOTT-08P-087-0440594-00

PATIENT
  Sex: Male
  Weight: 61 kg

DRUGS (11)
  1. SEVOFLURANE [Suspect]
     Indication: INDUCTION OF ANAESTHESIA
     Dosage: 1.7-2.5%
     Route: 055
     Dates: start: 20060221, end: 20060221
  2. SEVOFLURANE [Suspect]
     Indication: MAINTENANCE OF ANAESTHESIA
  3. FENTANYL CITRATE [Concomitant]
     Indication: ANAESTHESIA
     Route: 042
     Dates: start: 20060221, end: 20060221
  4. THIAMYLAL SODIUM [Concomitant]
     Indication: INDUCTION OF ANAESTHESIA
     Route: 042
     Dates: start: 20060221, end: 20060221
  5. VECURONIUM BROMIDE [Concomitant]
     Indication: ANAESTHESIA
     Route: 042
     Dates: start: 20060221, end: 20060221
  6. EPHEDRINE HYDROCHLORIDE [Concomitant]
     Indication: ANAESTHESIA
     Route: 042
     Dates: start: 20060221, end: 20060221
  7. ATROPINE SULFATE HYDRATE [Concomitant]
     Indication: ANAESTHESIA
     Route: 042
     Dates: start: 20060221, end: 20060221
  8. NEOSTIGMINE [Concomitant]
     Indication: ANAESTHESIA
     Route: 042
     Dates: start: 20060221, end: 20060221
  9. DIAZEPAM [Concomitant]
     Indication: ANAESTHETIC PREMEDICATION
     Route: 048
  10. OXYGEN [Concomitant]
     Indication: INDUCTION OF ANAESTHESIA
     Dosage: 6 L/MIN
  11. OXYGEN [Concomitant]
     Indication: MAINTENANCE OF ANAESTHESIA

REACTIONS (1)
  - UNWANTED AWARENESS DURING ANAESTHESIA [None]
